FAERS Safety Report 4737869-7 (Version None)
Quarter: 2005Q3

REPORT INFORMATION
  Report Type: 
  Country: None (occurrence: None)
  Receive Date: 20050805
  Receipt Date: 20050726
  Transmission Date: 20060218
  Serious: Yes (Hospitalization)
  Sender: FDA-Public Use
  Company Number: 2005106618

PATIENT
  Age: 81 Year
  Sex: Male
  Weight: 76 kg

DRUGS (6)
  1. AMLODIPINE [Suspect]
     Indication: ILL-DEFINED DISORDER
     Dosage: 1 DOSE FORM (INTERVAL:  EVERY DAY), ORAL
     Route: 048
     Dates: start: 20050118
  2. ACETYLSALICYLATE LYSINE (ACETYLSALICYLATE LYSINE) [Suspect]
     Indication: ILL-DEFINED DISORDER
     Dosage: 160 MG (INTERVAL:  EVERY DAY), ORAL
     Route: 048
     Dates: start: 20050118
  3. CLARITHROMYCIN [Suspect]
     Indication: ILL-DEFINED DISORDER
     Dosage: ORAL
     Route: 048
     Dates: start: 20050524, end: 20050531
  4. PANTOPRAZOLE SODIUM [Suspect]
     Indication: ILL-DEFINED DISORDER
     Dosage: 20 MG (INTERVAL:  EVERY DAY), ORAL
     Route: 048
     Dates: start: 20050118
  5. PRAVASTATIN [Suspect]
     Indication: ILL-DEFINED DISORDER
     Dosage: 20I MG (INTERVAL EVERY DAY), ORAL
     Route: 048
     Dates: start: 20050118
  6. THALIDOMIDE (THALIDOMIDE) [Suspect]
     Indication: ILL-DEFINED DISORDER
     Dosage: 100 MG (INTERVAL: EVERY DAY), ORAL
     Route: 048
     Dates: start: 20050118, end: 20050708

REACTIONS (4)
  - ASTHENIA [None]
  - PANCYTOPENIA [None]
  - RENAL FAILURE ACUTE [None]
  - TACHYPNOEA [None]
